FAERS Safety Report 21958663 (Version 1)
Quarter: 2023Q1

REPORT INFORMATION
  Report Type: Spontaneous
  Country: US (occurrence: None)
  Receive Date: 20230206
  Receipt Date: 20230206
  Transmission Date: 20230418
  Serious: No
  Sender: FDA-Public Use
  Company Number: 2023A006468

PATIENT
  Age: 80 Year
  Sex: Female
  Weight: 52.6 kg

DRUGS (2)
  1. BUDESONIDE\FORMOTEROL\GLYCOPYRRONIUM [Suspect]
     Active Substance: BUDESONIDE\FORMOTEROL\GLYCOPYRRONIUM
     Indication: Lung disorder
     Route: 055
     Dates: end: 20230107
  2. BUDESONIDE\FORMOTEROL\GLYCOPYRRONIUM [Suspect]
     Active Substance: BUDESONIDE\FORMOTEROL\GLYCOPYRRONIUM
     Indication: Cough
     Route: 055
     Dates: end: 20230107

REACTIONS (5)
  - Muscle spasms [Recovered/Resolved]
  - Abdominal discomfort [Recovered/Resolved]
  - Myalgia [Not Recovered/Not Resolved]
  - Cough [Unknown]
  - Limb discomfort [Recovered/Resolved]

NARRATIVE: CASE EVENT DATE: 20230107
